FAERS Safety Report 15006436 (Version 2)
Quarter: 2018Q3

REPORT INFORMATION
  Report Type: Spontaneous
  Country: IT (occurrence: IT)
  Receive Date: 20180613
  Receipt Date: 20180803
  Transmission Date: 20181010
  Serious: Yes (Other)
  Sender: FDA-Public Use
  Company Number: PHHY2018IT017768

PATIENT
  Age: 60 Year
  Sex: Male

DRUGS (2)
  1. INFLUENZA VIRUS VACCINE [Interacting]
     Active Substance: INFLUENZA VIRUS VACCINE
     Indication: PRODUCT USED FOR UNKNOWN INDICATION
     Route: 065
  2. ATORVASTATIN [Suspect]
     Active Substance: ATORVASTATIN
     Indication: PRODUCT USED FOR UNKNOWN INDICATION
     Route: 065

REACTIONS (11)
  - Hyperglycaemia [Recovered/Resolved]
  - Vomiting [Recovered/Resolved]
  - Drug interaction [Recovered/Resolved]
  - Gaze palsy [Recovered/Resolved]
  - Back pain [Recovered/Resolved]
  - Leukocytosis [Recovered/Resolved]
  - Foaming at mouth [Recovered/Resolved]
  - Generalised tonic-clonic seizure [Recovered/Resolved]
  - Rhabdomyolysis [Recovered/Resolved]
  - Tonic convulsion [Recovered/Resolved]
  - Seizure [Recovered/Resolved]
